FAERS Safety Report 13201186 (Version 1)
Quarter: 2017Q1

REPORT INFORMATION
  Report Type: Spontaneous
  Country: US (occurrence: US)
  Receive Date: 20170208
  Receipt Date: 20170208
  Transmission Date: 20170428
  Serious: No
  Sender: FDA-Public Use
  Company Number: US-AMGEN-USASP2016064458

PATIENT
  Sex: Male

DRUGS (1)
  1. NEULASTA [Suspect]
     Active Substance: PEGFILGRASTIM
     Indication: PRODUCT USED FOR UNKNOWN INDICATION
     Dosage: UNK
     Route: 065

REACTIONS (8)
  - Application site pain [Unknown]
  - Insomnia [Unknown]
  - Device failure [Unknown]
  - Pruritus [Unknown]
  - Contusion [Unknown]
  - Overdose [Unknown]
  - Device malfunction [Unknown]
  - Arthralgia [Unknown]

NARRATIVE: CASE EVENT DATE: 201605
